FAERS Safety Report 5995626-8 (Version None)
Quarter: 2008Q4

REPORT INFORMATION
  Report Type: 
  Country: None (occurrence: None)
  Receive Date: 20081212
  Receipt Date: 20081002
  Transmission Date: 20090506
  Serious: No
  Sender: FDA-Public Use
  Company Number: US-ABBOTT-08P-163-0479487-00

PATIENT
  Sex: Male
  Weight: 145.45 kg

DRUGS (8)
  1. HUMIRA [Suspect]
     Indication: PSORIASIS
     Route: 058
     Dates: start: 20081001
  2. VALPROATE SODIUM [Concomitant]
     Indication: MOOD ALTERED
     Route: 048
  3. ARIPIPRAZOLE [Concomitant]
     Indication: MOOD ALTERED
     Dosage: EVERY MORNING
     Route: 048
     Dates: start: 20030101
  4. PIOGLITAZONE [Concomitant]
     Indication: DIABETES MELLITUS
     Route: 048
     Dates: start: 20080301
  5. GLYBURIDE [Concomitant]
     Indication: DIABETES MELLITUS
     Route: 048
     Dates: start: 20070501
  6. ZONISAMIDE [Concomitant]
     Indication: DECREASED APPETITE
     Route: 048
     Dates: start: 20080901
  7. SIMVASTATIN [Concomitant]
     Indication: BLOOD CHOLESTEROL
     Route: 048
     Dates: start: 20050101
  8. FENOFIBRATE [Concomitant]
     Indication: BLOOD TRIGLYCERIDES
     Route: 048
     Dates: start: 20050101

REACTIONS (2)
  - ACCIDENTAL EXPOSURE [None]
  - INJECTION SITE PAIN [None]
